FAERS Safety Report 8588330-3 (Version None)
Quarter: 2012Q3

REPORT INFORMATION
  Report Type: 
  Country: None (occurrence: None)
  Receive Date: 20120813
  Receipt Date: 20120801
  Transmission Date: 20120928
  Serious: Yes (Other)
  Sender: FDA-Public Use
  Company Number: US-ELI_LILLY_AND_COMPANY-US201208001054

PATIENT
  Age: 42 Year
  Sex: Female

DRUGS (4)
  1. RISPERDAL [Concomitant]
     Dosage: 10 MG, UNKNOWN
  2. ABILIFY [Concomitant]
     Dosage: 10 MG, UNKNOWN
  3. SEROQUEL [Concomitant]
     Dosage: 150 MG, UNKNOWN
  4. CYMBALTA [Suspect]
     Indication: DEPRESSION
     Dosage: 60 MG, BID
     Dates: start: 20100101

REACTIONS (5)
  - HEPATIC ENZYME INCREASED [None]
  - GASTRIC BYPASS [None]
  - GASTROINTESTINAL PAIN [None]
  - WEIGHT INCREASED [None]
  - CHOLELITHIASIS [None]
